FAERS Safety Report 5449632-2 (Version None)
Quarter: 2007Q3

REPORT INFORMATION
  Report Type: 
  Country: None (occurrence: None)
  Receive Date: 20070912
  Receipt Date: 20070905
  Transmission Date: 20080115
  Serious: Yes (Hospitalization)
  Sender: FDA-Public Use
  Company Number: PHEH2007US11927

PATIENT
  Age: 45 Year
  Sex: Male

DRUGS (13)
  1. AVELOX [Concomitant]
  2. LANTUS [Concomitant]
     Route: 058
  3. NOVOLOG [Concomitant]
  4. CELLCEPT [Concomitant]
  5. URSODIOL [Concomitant]
  6. PROGRAF [Concomitant]
  7. ACYCLOVIR [Concomitant]
  8. NEXIUM [Concomitant]
  9. FOLIC ACID [Concomitant]
  10. GLEEVEC [Suspect]
     Indication: ACUTE LYMPHOCYTIC LEUKAEMIA
     Dosage: 400 MG, QD
     Route: 048
     Dates: start: 20060101, end: 20070801
  11. GLEEVEC [Suspect]
     Dosage: 1600 MG, QD
     Route: 048
     Dates: start: 20070801
  12. VFEND [Concomitant]
  13. ENTOCORT EC [Concomitant]

REACTIONS (1)
  - INCORRECT DOSE ADMINISTERED [None]
